FAERS Safety Report 18866967 (Version 1)
Quarter: 2021Q1

REPORT INFORMATION
  Report Type: Report from Study
  Country: DE (occurrence: DE)
  Receive Date: 20210209
  Receipt Date: 20210209
  Transmission Date: 20210420
  Serious: Yes (Hospitalization)
  Sender: FDA-Public Use
  Company Number: DE-BAYER-2021-024197

PATIENT
  Age: 58 Year
  Sex: Female

DRUGS (1)
  1. BETAFERON [Suspect]
     Active Substance: INTERFERON BETA-1B
     Indication: MULTIPLE SCLEROSIS
     Dosage: 250 ?G, QOD
     Route: 058
     Dates: start: 20060207

REACTIONS (6)
  - Electrocardiogram abnormal [Recovered/Resolved]
  - Skin reaction [Recovering/Resolving]
  - Erythema [Recovering/Resolving]
  - Arthralgia [None]
  - Dry skin [None]
  - Pruritus [Recovering/Resolving]

NARRATIVE: CASE EVENT DATE: 20210112
